FAERS Safety Report 7375340 (Version 3)
Quarter: 2012Q4

REPORT INFORMATION
  Report Type: 
  Country: US (occurrence: US)
  Receive Date: 20100503
  Receipt Date: 20121017
  Transmission Date: 20130627
  Serious: No
  Sender: FDA-Public Use
  Company Number: US-ASTRAZENECA-2009SE20122

PATIENT
  Age: 58 Year
  Sex: Male

DRUGS (4)
  1. NEXIUM [Suspect]
     Route: 048
  2. NEXIUM [Suspect]
     Route: 048
  3. ACETAMINOPHEN/OXYCODONE [Concomitant]
  4. STOOL SOFTENERS [Concomitant]

REACTIONS (3)
  - Dry mouth [Recovering/Resolving]
  - Dysgeusia [Recovering/Resolving]
  - Dry throat [Unknown]
